FAERS Safety Report 15606843 (Version 1)
Quarter: 2018Q4

REPORT INFORMATION
  Report Type: Report from Study
  Country: TH (occurrence: TH)
  Receive Date: 20181112
  Receipt Date: 20181112
  Transmission Date: 20190205
  Serious: Yes (Other)
  Sender: FDA-Public Use
  Company Number: TH-GLAXOSMITHKLINE-TH2018GSK097780

PATIENT
  Sex: Male
  Weight: 77.2 kg

DRUGS (4)
  1. LAMIVUDINE. [Suspect]
     Active Substance: LAMIVUDINE
     Indication: HIV INFECTION
     Dosage: 300 MG, UNK
     Dates: start: 20171206
  2. RILPIVIRINE [Concomitant]
     Active Substance: RILPIVIRINE
     Dosage: 25 MG, UNK
     Dates: start: 20180530
  3. DOLUTEGRAVIR [Suspect]
     Active Substance: DOLUTEGRAVIR
     Indication: HIV INFECTION
     Dosage: 50 MG, UNK
     Dates: start: 20171206, end: 20180530
  4. ABACAVIR SULPHATE [Suspect]
     Active Substance: ABACAVIR
     Indication: HIV INFECTION
     Dosage: 600 MG, UNK
     Dates: start: 20171206

REACTIONS (2)
  - Alanine aminotransferase increased [Recovered/Resolved]
  - Hepatitis A [Recovered/Resolved]

NARRATIVE: CASE EVENT DATE: 20180530
